FAERS Safety Report 7989953-2 (Version None)
Quarter: 2011Q4

REPORT INFORMATION
  Report Type: 
  Country: None (occurrence: None)
  Receive Date: 20111219
  Receipt Date: 20111010
  Transmission Date: 20120403
  Serious: No
  Sender: FDA-Public Use
  Company Number: US-ASTRAZENECA-2011SE60859

PATIENT
  Age: 85 Year
  Sex: Female
  Weight: 68.5 kg

DRUGS (4)
  1. CRESTOR [Suspect]
     Indication: HYPERTENSION
     Route: 048
  2. TWO OTHER BLOOD PRESSURE PILLS [Concomitant]
  3. XOPENX [Concomitant]
     Indication: INHALATION THERAPY
  4. ENTOCRINE [Concomitant]

REACTIONS (3)
  - VOMITING [None]
  - DIARRHOEA [None]
  - OFF LABEL USE [None]
